FAERS Safety Report 10262828 (Version 2)
Quarter: 2014Q2

REPORT INFORMATION
  Report Type: Report from Study
  Country: US (occurrence: US)
  Receive Date: 20140626
  Receipt Date: 20140626
  Transmission Date: 20141212
  Serious: Yes (Death)
  Sender: FDA-Public Use
  Company Number: US-MYLANLABS-2013S1018142

PATIENT
  Age: 50 Year
  Sex: Female
  Weight: 72.58 kg

DRUGS (7)
  1. CLOZAPINE TABLETS [Suspect]
     Indication: SCHIZOAFFECTIVE DISORDER
     Dosage: ONE IN AM AND THREE AT BEDTIME
     Route: 048
     Dates: end: 20130701
  2. CLOZAPINE TABLETS [Suspect]
     Indication: SCHIZOAFFECTIVE DISORDER
     Dosage: ONE IN AM AND THREE AT BEDTIME
     Route: 048
     Dates: end: 20130701
  3. CHEMOTHERAPEUTICS [Suspect]
  4. PAXIL /00500401/ [Concomitant]
  5. KLONOPIN [Concomitant]
  6. RESPERAL [Concomitant]
  7. LAMICTAL [Concomitant]

REACTIONS (1)
  - B-cell lymphoma [Fatal]
